FAERS Safety Report 7819281-7 (Version None)
Quarter: 2011Q4

REPORT INFORMATION
  Report Type: 
  Country: None (occurrence: None)
  Receive Date: 20111018
  Receipt Date: 20110516
  Transmission Date: 20120403
  Serious: No
  Sender: FDA-Public Use
  Company Number: US-ASTRAZENECA-2011SE29535

PATIENT
  Age: 67 Year
  Sex: Male
  Weight: 99.8 kg

DRUGS (13)
  1. GLYPERIDE [Concomitant]
     Indication: DIABETES MELLITUS
  2. DOXYCYCLINE [Concomitant]
     Indication: PROPHYLAXIS
  3. LISINOPRIL [Concomitant]
     Indication: HYPERTENSION
  4. METFORMIN HYDROCHLORIDE [Concomitant]
     Indication: DIABETES MELLITUS
  5. RESTASIS [Concomitant]
     Indication: DRY EYE
  6. PANTOPRAZOLE [Concomitant]
     Indication: GASTROOESOPHAGEAL REFLUX DISEASE
  7. SIMVASTATIN [Concomitant]
     Indication: HYPERCHOLESTEROLAEMIA
  8. METOPROLOL TARTRATE [Concomitant]
     Indication: HYPERTENSION
  9. ASPIRIN [Concomitant]
     Indication: PROPHYLAXIS
  10. FUROSEMIDE [Concomitant]
     Indication: HYPERTENSION
  11. ACTOS [Concomitant]
  12. SYMBICORT [Suspect]
     Indication: BRONCHITIS
     Dosage: 80/4.5 MCG UNKNOWN
     Route: 055
     Dates: start: 20110504
  13. NITROQUIK [Concomitant]
     Indication: ANGINA PECTORIS

REACTIONS (1)
  - PULMONARY FUNCTION TEST DECREASED [None]
